FAERS Safety Report 4725433-5 (Version None)
Quarter: 2005Q3

REPORT INFORMATION
  Report Type: 
  Country: None (occurrence: None)
  Receive Date: 20050721
  Receipt Date: 20050530
  Transmission Date: 20060218
  Serious: No
  Sender: FDA-Public Use
  Company Number: 2005SP001157

PATIENT
  Sex: 0
  Weight: 56.6996 kg

DRUGS (2)
  1. LUNESTA [Suspect]
     Dosage: 3 MG;ORAL
     Route: 048
  2. NEXIUM [Concomitant]

REACTIONS (2)
  - DRUG INEFFECTIVE [None]
  - INITIAL INSOMNIA [None]
